FAERS Safety Report 7519319-0 (Version None)
Quarter: 2011Q2

REPORT INFORMATION
  Report Type: 
  Country: None (occurrence: None)
  Receive Date: 20110523
  Receipt Date: 20110510
  Transmission Date: 20111010
  Serious: Yes (Hospitalization)
  Sender: FDA-Public Use
  Company Number: CLOF-10696

PATIENT
  Age: 69 Year
  Sex: Male
  Weight: 105 kg

DRUGS (17)
  1. CEPHALEXIN [Concomitant]
  2. NORVASC [Concomitant]
  3. SIMVASTATIN [Concomitant]
  4. CLOFARABINE (CLOFARABINE) TABLET [Suspect]
     Indication: MYELODYSPLASTIC SYNDROME
     Dosage: 55 MG, QDX5, ORAL
     Route: 048
     Dates: start: 20070924, end: 20070928
  5. PROCRIT [Concomitant]
  6. MILK OF MAGNESIA TAB [Concomitant]
  7. ALBUTEROL [Concomitant]
  8. LEVAQUIN [Concomitant]
  9. FLONASE [Concomitant]
  10. PLAVIX [Concomitant]
  11. SPORANOX [Concomitant]
  12. TOPROL-XL [Concomitant]
  13. ATARAX [Concomitant]
  14. VALTREX [Concomitant]
  15. EZETIMIBE [Concomitant]
  16. LISINOPRIL [Concomitant]
  17. ASPIRIN [Concomitant]

REACTIONS (17)
  - PALMAR-PLANTAR ERYTHRODYSAESTHESIA SYNDROME [None]
  - MYOCARDIAL INFARCTION [None]
  - CARDIAC FAILURE CONGESTIVE [None]
  - PNEUMONIA FUNGAL [None]
  - VOMITING [None]
  - SINUS TACHYCARDIA [None]
  - SINUSITIS [None]
  - PSEUDOMONAL SEPSIS [None]
  - FUSARIUM INFECTION [None]
  - HAEMOPHILUS INFECTION [None]
  - PLEURAL FIBROSIS [None]
  - RENAL FAILURE ACUTE [None]
  - SUPRAVENTRICULAR TACHYCARDIA [None]
  - ENTEROBACTER SEPSIS [None]
  - LUNG NEOPLASM [None]
  - OEDEMA PERIPHERAL [None]
  - ATELECTASIS [None]
